FAERS Safety Report 24300174 (Version 1)
Quarter: 2024Q3

REPORT INFORMATION
  Report Type: Spontaneous
  Country: CN (occurrence: CN)
  Receive Date: 20240909
  Receipt Date: 20240909
  Transmission Date: 20241016
  Serious: Yes (Life-Threatening, Other)
  Sender: MERCK
  Company Number: CN-009507513-2409CHN002170

PATIENT
  Age: 73 Year
  Sex: Male

DRUGS (2)
  1. KEYTRUDA [Suspect]
     Active Substance: PEMBROLIZUMAB
     Indication: Lung neoplasm
     Dosage: 200 MG, ONCE
     Route: 041
     Dates: start: 20240807, end: 20240807
  2. PEMETREXED [Suspect]
     Active Substance: PEMETREXED
     Indication: Lung neoplasm
     Dosage: 0.7 GRAM, ONCE
     Route: 041
     Dates: start: 20240807, end: 20240807

REACTIONS (2)
  - Myelosuppression [Recovering/Resolving]
  - Product use issue [Unknown]

NARRATIVE: CASE EVENT DATE: 20240807
